FAERS Safety Report 5281989-8 (Version None)
Quarter: 2007Q1

REPORT INFORMATION
  Report Type: 
  Country: None (occurrence: None)
  Receive Date: 20061218
  Receipt Date: 20051107
  Transmission Date: 20070707
  Serious: Yes (Hospitalization)
  Sender: FDA-Public Use
  Company Number: US_0511123812

PATIENT
  Sex: Female

DRUGS (2)
  1. HUMALOG [Suspect]
     Dosage: SUBCUTANEOUS
     Route: 058
     Dates: end: 20041201
  2. HUMULIN(HUMAN INSULIN (RDNA ORIGIN) 30% REGULAR, 70% NPH UNKNOWN FORMU [Suspect]
     Dosage: SUBCUTANEOUS
     Route: 058

REACTIONS (1)
  - BLOOD GLUCOSE DECREASED [None]
